FAERS Safety Report 4651009-4 (Version None)
Quarter: 2005Q2

REPORT INFORMATION
  Report Type: 
  Country: None (occurrence: None)
  Receive Date: 20050429
  Receipt Date: 20050418
  Transmission Date: 20051028
  Serious: Yes (Hospitalization, Other)
  Sender: FDA-Public Use
  Company Number: 2005061455

PATIENT
  Age: 64 Year
  Sex: Male
  Weight: 109.3169 kg

DRUGS (5)
  1. VIAGRA [Suspect]
     Indication: ERECTILE DYSFUNCTION
     Dosage: 100 MG (100 MG, AS NECESSARY), ORAL
     Route: 048
     Dates: end: 20050401
  2. ROFECOXIB [Concomitant]
  3. CELECOXIB (CELECOXIB) [Concomitant]
  4. OMEPRAZOLE [Concomitant]
  5. LISINOPRIL [Concomitant]

REACTIONS (3)
  - ANGIOPLASTY [None]
  - MYOCARDIAL INFARCTION [None]
  - PROSTATE CANCER [None]
